FAERS Safety Report 21848934 (Version 1)
Quarter: 2023Q1

REPORT INFORMATION
  Report Type: Report from Study
  Country: CA (occurrence: CA)
  Receive Date: 20230111
  Receipt Date: 20230111
  Transmission Date: 20230417
  Serious: Yes (Other)
  Sender: FDA-Public Use
  Company Number: CA-GLAXOSMITHKLINE-CA2023001938

PATIENT

DRUGS (1)
  1. MEPOLIZUMAB [Suspect]
     Active Substance: MEPOLIZUMAB
     Indication: Asthma
     Dosage: 100MG/SC EVERY 4 WEEKS
     Route: 058
     Dates: start: 20190611

REACTIONS (1)
  - Pneumonia [Unknown]
